FAERS Safety Report 5165201-6 (Version None)
Quarter: 2006Q4

REPORT INFORMATION
  Report Type: 
  Country: None (occurrence: None)
  Receive Date: 20061127
  Receipt Date: 20061110
  Transmission Date: 20070319
  Serious: Yes (Life-Threatening, Hospitalization)
  Sender: FDA-Public Use
  Company Number: DSA_29016_2006

PATIENT
  Age: 85 Year
  Sex: Female

DRUGS (4)
  1. ENALAPRIL MALEATE AND HYDROCHLOROTHIAZIDE [Suspect]
     Indication: HYPERTENSION
     Dosage: VAR Q DAY PO
     Route: 048
     Dates: end: 20060709
  2. ASPIRIN [Concomitant]
  3. CARBIMAZOLE [Concomitant]
  4. FELODIPINE [Concomitant]

REACTIONS (4)
  - HEPATITIS [None]
  - PROTHROMBIN TIME RATIO DECREASED [None]
  - RIGHT VENTRICULAR FAILURE [None]
  - TREATMENT NONCOMPLIANCE [None]
